FAERS Safety Report 4779105-1 (Version None)
Quarter: 2005Q3

REPORT INFORMATION
  Report Type: 
  Country: None (occurrence: None)
  Receive Date: 20050914
  Receipt Date: 20050607
  Transmission Date: 20060218
  Serious: Yes (Other)
  Sender: FDA-Public Use
  Company Number: 407183

PATIENT
  Age: 63 Year
  Sex: Female
  Weight: 55.8 kg

DRUGS (9)
  1. BONIVA [Suspect]
     Dosage: 150 MG 1 PER MONTH ORAL
     Route: 048
     Dates: start: 20050605
  2. EVISTA [Concomitant]
  3. TENORETIC (ATENOLOL/CHLORTHALIDONE) [Concomitant]
  4. BONIVA [Suspect]
     Dosage: 150 MG 1 PER MONTH ORAL
     Route: 048
     Dates: start: 20050605
  5. EVISTA [Concomitant]
  6. TENORETIC (ATENOLOL/CHLORTHALIDONE) [Concomitant]
  7. SYNTHROID [Concomitant]
  8. MULTI-VITS (MULTIVITAMIN NOS) [Concomitant]
  9. GLUCOSAMINE (GLUCOSAMINE) [Concomitant]

REACTIONS (5)
  - ARTHRALGIA [None]
  - BURNING SENSATION [None]
  - OESOPHAGEAL PAIN [None]
  - PAIN IN EXTREMITY [None]
  - RHEUMATOID ARTHRITIS [None]
